FAERS Safety Report 23202488 (Version 1)
Quarter: 2023Q4

REPORT INFORMATION
  Report Type: Spontaneous
  Country: GB (occurrence: GB)
  Receive Date: 20231120
  Receipt Date: 20231120
  Transmission Date: 20240109
  Serious: Yes (Hospitalization)
  Sender: FDA-Public Use
  Company Number: GB-STRIDES ARCOLAB LIMITED-2023SP017159

PATIENT
  Age: 34 Year
  Sex: Male

DRUGS (7)
  1. POLYETHYLENE GLYCOL 3350 [Suspect]
     Active Substance: POLYETHYLENE GLYCOL 3350
     Indication: Constipation
     Dosage: UNK
     Route: 065
  2. RIBOFLAVIN [Concomitant]
     Active Substance: RIBOFLAVIN
     Indication: Toxicity to various agents
     Dosage: UNK
     Route: 065
  3. AMITRIPTYLINE [Concomitant]
     Active Substance: AMITRIPTYLINE
     Indication: Neuralgia
     Dosage: UNK
     Route: 065
  4. PERINDOPRIL [Concomitant]
     Active Substance: PERINDOPRIL
     Indication: Hypertension
     Dosage: UNK
     Route: 065
  5. THALLIUM SULFATE [Concomitant]
     Indication: Product used for unknown indication
     Dosage: UNK, (PREVIOUSLY 5 TIMES AT LOWER DOSES)
     Route: 065
  6. THALLIUM SULFATE [Concomitant]
     Dosage: UNK
     Route: 065
  7. PRUSSIAN BLUE [Concomitant]
     Indication: Chelation therapy
     Dosage: UNK
     Route: 065

REACTIONS (1)
  - Blood sodium decreased [Recovered/Resolved]
